FAERS Safety Report 19812236 (Version 5)
Quarter: 2022Q2

REPORT INFORMATION
  Report Type: Report from Study
  Country: US (occurrence: US)
  Receive Date: 20210909
  Receipt Date: 20220512
  Transmission Date: 20220721
  Serious: Yes (Other)
  Sender: FDA-Public Use
  Company Number: US-NOVARTISPH-NVSC2021US205232

PATIENT
  Sex: Male
  Weight: 104.33 kg

DRUGS (3)
  1. ENTRESTO [Suspect]
     Active Substance: SACUBITRIL\VALSARTAN
     Indication: Cardiac failure
     Dosage: 1 DOSAGE FORM, BID (97/103 MG)
     Route: 048
     Dates: start: 20210601
  2. ATORVASTATIN [Suspect]
     Active Substance: ATORVASTATIN
     Indication: Blood cholesterol increased
     Dosage: UNK
     Route: 048
     Dates: start: 2018
  3. ROSUVASTATIN [Suspect]
     Active Substance: ROSUVASTATIN
     Indication: Blood cholesterol increased
     Dosage: UNK
     Route: 065
     Dates: start: 20210920, end: 20210922

REACTIONS (14)
  - Polymyalgia rheumatica [Recovered/Resolved]
  - Limb injury [Unknown]
  - Mucosal inflammation [Recovered/Resolved]
  - Weight decreased [Recovering/Resolving]
  - Blood cholesterol increased [Unknown]
  - Blood triglycerides increased [Unknown]
  - Weight fluctuation [Recovered/Resolved]
  - Drug intolerance [Recovered/Resolved]
  - Muscular weakness [Unknown]
  - Musculoskeletal stiffness [Recovered/Resolved]
  - Musculoskeletal stiffness [Unknown]
  - Back pain [Recovering/Resolving]
  - Rash [Unknown]
  - Pruritus [Unknown]

NARRATIVE: CASE EVENT DATE: 20180101
